FAERS Safety Report 4491766-3 (Version None)
Quarter: 2004Q4

REPORT INFORMATION
  Report Type: 
  Country: None (occurrence: None)
  Receive Date: 20041101
  Receipt Date: 20041019
  Transmission Date: 20050328
  Serious: Yes (Hospitalization, Other)
  Sender: FDA-Public Use
  Company Number: 2004080553

PATIENT
  Sex: Female

DRUGS (13)
  1. NEURONTIN [Suspect]
     Indication: ILL-DEFINED DISORDER
     Dosage: 900 MG (300 MG,3 IN 1 D), UNKNOWN
     Route: 065
  2. FENTANYL (FENTANYL) (FENTANYL) [Suspect]
     Indication: ILL-DEFINED DISORDER
     Dosage: UNKNOWN
     Route: 065
  3. MYCOPHENOLATE MOFETIL (MYCOPHENOLATE MOFETIL) [Concomitant]
  4. TACROLIMUS (TACROLIMUS) [Concomitant]
  5. ASPIRIN [Concomitant]
  6. PREDNISONE [Concomitant]
  7. CALCIUM ACETATE (CALCIUM ACETATE) [Concomitant]
  8. LABETALOL HCL [Concomitant]
  9. ISOSORBIDE DINITRATE [Concomitant]
  10. ENALAPRIL MALEATE [Concomitant]
  11. PAROXETINE HCL [Concomitant]
  12. CLONAZEPAM [Concomitant]
  13. VALPROATE SODIUM [Concomitant]

REACTIONS (3)
  - ACCIDENTAL OVERDOSE [None]
  - DIALYSIS [None]
  - MENTAL STATUS CHANGES [None]
